FAERS Safety Report 12238315 (Version 3)
Quarter: 2016Q2

REPORT INFORMATION
  Report Type: Spontaneous
  Country: DE (occurrence: DE)
  Receive Date: 20160405
  Receipt Date: 20160421
  Transmission Date: 20160815
  Serious: Yes (Other)
  Sender: FDA-Public Use
  Company Number: DE-PFIZER INC-2016193641

PATIENT
  Sex: Female

DRUGS (2)
  1. CELEBREX [Suspect]
     Active Substance: CELECOXIB
     Dosage: 200 MG, 2X/DAY
  2. CELEBREX [Suspect]
     Active Substance: CELECOXIB
     Dosage: 200 MG, 1X/DAY

REACTIONS (4)
  - Vitreous floaters [Not Recovered/Not Resolved]
  - Nasopharyngitis [Recovered/Resolved]
  - Eye haemorrhage [Not Recovered/Not Resolved]
  - Photopsia [Recovered/Resolved]
